FAERS Safety Report 7460798-5 (Version None)
Quarter: 2011Q2

REPORT INFORMATION
  Report Type: 
  Country: None (occurrence: None)
  Receive Date: 20110427
  Receipt Date: 20110414
  Transmission Date: 20111010
  Serious: Yes (Hospitalization)
  Sender: FDA-Public Use
  Company Number: 2011AC000026

PATIENT
  Age: 64 Year
  Sex: Female

DRUGS (90)
  1. ZOLOFT [Concomitant]
  2. ASPIRIN [Concomitant]
  3. GLYBURIDE [Concomitant]
  4. NORVASC [Concomitant]
  5. WARFARIN SODIUM [Concomitant]
  6. LANOXIN [Concomitant]
  7. PRILOSEC [Concomitant]
  8. DEXAMETHASONE/NEOMYCIN [Concomitant]
  9. FENOFIBRATE [Concomitant]
  10. REMERON [Concomitant]
  11. XANAX [Concomitant]
  12. ACETAMINOPHEN AND HYDROCODONE BITARTRATE [Concomitant]
  13. RAMIPRIL [Concomitant]
  14. LEVOTHYROXINE SODIUM [Concomitant]
  15. ZOLPIDEM [Concomitant]
  16. LIPITOR [Concomitant]
  17. HYDROCORTISONE ACETATE [Concomitant]
  18. VENLAFAXINE [Concomitant]
  19. LANSOPRAZOLE [Concomitant]
  20. AMARYL [Concomitant]
  21. EFFEXOR [Concomitant]
  22. TRICOR [Concomitant]
  23. TAMBOCOR [Concomitant]
  24. NAPROXEN [Concomitant]
  25. FUROSEMIDE [Concomitant]
  26. OMEPRAZOLE [Concomitant]
  27. CHANTIX [Concomitant]
  28. DILANTIN [Concomitant]
  29. NOVOLOG [Concomitant]
  30. FLECAINIDE ACETATE [Concomitant]
  31. ATIVAN [Concomitant]
  32. DIGOXIN [Suspect]
     Dosage: .25 MG;QD;PO
     Route: 048
     Dates: start: 20020101, end: 20090703
  33. DIGOXIN [Suspect]
     Dosage: 0..250 MG;QD;PO
     Route: 048
     Dates: start: 19980101
  34. COUMADIN [Concomitant]
  35. IBUPROFEN [Concomitant]
  36. ALPRAZOLAM [Concomitant]
  37. ANUCORT [Concomitant]
  38. PROP-N/APAP [Concomitant]
  39. ACULAR [Concomitant]
  40. NIASPAN [Concomitant]
  41. REQUIP [Concomitant]
  42. ALLEGRA [Concomitant]
  43. LOVENOX [Concomitant]
  44. TAMICOR [Concomitant]
  45. POLYMYXIN [Concomitant]
  46. PRAVASTATIN [Concomitant]
  47. SPIRONOLACTONE [Concomitant]
  48. POTASSIUM CHLORIDE [Concomitant]
  49. MAGNESIUM OXIDE [Concomitant]
  50. MIRTAZAPINE [Concomitant]
  51. PHENYTOIN [Concomitant]
  52. METFORMIN HCL [Concomitant]
  53. AMBIEN [Concomitant]
  54. ALTACE [Concomitant]
  55. SYNTHROID [Concomitant]
  56. SETRALINE HYDROCHLORIDE [Concomitant]
  57. ENULOSE [Concomitant]
  58. HEMORRHOIDAL HC [Concomitant]
  59. ROSUVASTATIN [Concomitant]
  60. LASIX [Concomitant]
  61. PREVACID [Concomitant]
  62. ATENOLOL [Concomitant]
  63. CRESTOR [Concomitant]
  64. OXYCODONE HCL AND ACETAMINOPHEN [Concomitant]
  65. GLIMEPIRIDE [Concomitant]
  66. PENLAC [Concomitant]
  67. PRAVACHOL [Concomitant]
  68. ELESTAT [Concomitant]
  69. ESOMEPRAZOLE MAGNESIUM [Concomitant]
  70. AXID [Concomitant]
  71. CORDARONE [Concomitant]
  72. DIPRIVAN [Concomitant]
  73. GLUCOPHAGE [Concomitant]
  74. VITAMIN	K [Concomitant]
  75. DIGOXIN [Suspect]
     Indication: HEART RATE IRREGULAR
     Dosage: 0.125 MG;QD;PO
     Route: 048
  76. NEXIUM [Concomitant]
  77. ROPINIROLE [Concomitant]
  78. CALCIUM [Concomitant]
  79. IPRATROPIUM BROMIDE [Concomitant]
  80. CLARITIN [Concomitant]
  81. DARVOCET [Concomitant]
  82. FIBERCON [Concomitant]
  83. ATROVENT [Concomitant]
  84. FEXOPHENADINE HYDROCHLORIDE [Concomitant]
  85. DILTIAZEM [Concomitant]
  86. CARDIZEM [Concomitant]
  87. MICRONASE [Concomitant]
  88. GLIMEPIRIDE [Concomitant]
  89. NASAL SPRAY [Concomitant]
  90. VERAPAMIL [Concomitant]

REACTIONS (77)
  - ASTHENIA [None]
  - CARDIOACTIVE DRUG LEVEL BELOW THERAPEUTIC [None]
  - BACK PAIN [None]
  - MYOCARDIAL INFARCTION [None]
  - DYSARTHRIA [None]
  - HEART RATE IRREGULAR [None]
  - BRAIN NEOPLASM [None]
  - BRONCHITIS [None]
  - SUICIDAL IDEATION [None]
  - HYPERKALAEMIA [None]
  - NAUSEA [None]
  - VENTRICULAR EXTRASYSTOLES [None]
  - INSOMNIA [None]
  - NERVOUSNESS [None]
  - INTERNATIONAL NORMALISED RATIO INCREASED [None]
  - BUTTERFLY RASH [None]
  - LYMPHADENOPATHY [None]
  - CONFUSIONAL STATE [None]
  - PRESYNCOPE [None]
  - ELECTROCARDIOGRAM ST-T CHANGE [None]
  - MENINGIOMA [None]
  - CEREBRAL INFARCTION [None]
  - DEPRESSION [None]
  - BACK INJURY [None]
  - CARDIAC HYPERTROPHY [None]
  - LYMPHOMA [None]
  - CARDIOACTIVE DRUG LEVEL ABOVE THERAPEUTIC [None]
  - HYPERHIDROSIS [None]
  - ANXIETY [None]
  - DIABETES MELLITUS INADEQUATE CONTROL [None]
  - BLOOD UREA INCREASED [None]
  - ATRIAL HYPERTROPHY [None]
  - VIITH NERVE PARALYSIS [None]
  - BURNING SENSATION [None]
  - COAGULOPATHY [None]
  - B-CELL LYMPHOMA [None]
  - CARDIAC FAILURE CONGESTIVE [None]
  - AORTIC VALVE SCLEROSIS [None]
  - DECREASED APPETITE [None]
  - PAIN IN EXTREMITY [None]
  - ATRIAL FIBRILLATION [None]
  - RENAL MASS [None]
  - EPISTAXIS [None]
  - BUNDLE BRANCH BLOCK LEFT [None]
  - MITRAL VALVE INCOMPETENCE [None]
  - FAMILY STRESS [None]
  - HYPERLIPIDAEMIA [None]
  - CAROTID ARTERY STENOSIS [None]
  - UNRESPONSIVE TO STIMULI [None]
  - CONVULSION [None]
  - TRICUSPID VALVE INCOMPETENCE [None]
  - INTERNATIONAL NORMALISED RATIO DECREASED [None]
  - ATRIOVENTRICULAR BLOCK FIRST DEGREE [None]
  - TREATMENT NONCOMPLIANCE [None]
  - HEAD INJURY [None]
  - RESTLESS LEGS SYNDROME [None]
  - COLD SWEAT [None]
  - ACQUIRED MACROGLOSSIA [None]
  - DYSPNOEA [None]
  - LEFT VENTRICULAR HYPERTROPHY [None]
  - EXTENSOR PLANTAR RESPONSE [None]
  - RHINORRHOEA [None]
  - HYPERTENSION [None]
  - ACUTE RESPIRATORY FAILURE [None]
  - PULMONARY OEDEMA [None]
  - GLOMERULAR FILTRATION RATE DECREASED [None]
  - CAROTID ARTERIOSCLEROSIS [None]
  - FALL [None]
  - CARDIAC FLUTTER [None]
  - VOMITING [None]
  - CEREBROVASCULAR ACCIDENT [None]
  - BALANCE DISORDER [None]
  - ARRHYTHMIA [None]
  - ATRIAL TACHYCARDIA [None]
  - GRAND MAL CONVULSION [None]
  - TOXICITY TO VARIOUS AGENTS [None]
  - ANTICONVULSANT DRUG LEVEL ABOVE THERAPEUTIC [None]
